FAERS Safety Report 8029810 (Version 9)
Quarter: 2012Q4

REPORT INFORMATION
  Report Type: 
  Country: US (occurrence: US)
  Receive Date: 20110711
  Receipt Date: 20121031
  Transmission Date: 20130627
  Serious: Yes (Other)
  Sender: FDA-Public Use
  Company Number: US-ASTRAZENECA-2010SE46878

PATIENT
  Age: 58 Year
  Sex: Female

DRUGS (10)
  1. ARIMIDEX [Suspect]
     Indication: BREAST CANCER
     Route: 048
     Dates: start: 2009
  2. NOLVADEX [Suspect]
     Route: 048
  3. SEROQUEL [Suspect]
     Indication: BIPOLAR DISORDER
     Route: 048
     Dates: start: 1998
  4. SEROQUEL [Suspect]
     Indication: BIPOLAR DISORDER
     Route: 048
     Dates: start: 2000
  5. SEROQUEL [Suspect]
     Indication: BIPOLAR DISORDER
     Route: 048
  6. SEROQUEL [Suspect]
     Indication: BIPOLAR DISORDER
     Route: 048
     Dates: start: 20051202
  7. LAMICTAL [Concomitant]
     Dosage: 400 DAILY
     Route: 048
  8. WELLBUTRIN [Concomitant]
     Dosage: 300 DAILY
     Route: 048
  9. KLONOPIN [Concomitant]
     Dosage: 1.5 DAILY
     Route: 048
  10. CLONAZEPAM [Concomitant]

REACTIONS (8)
  - Breast cancer female [Recovered/Resolved]
  - Neoplasm malignant [Unknown]
  - Stress [Unknown]
  - Tendonitis [Unknown]
  - Fall [Unknown]
  - Dysphonia [Unknown]
  - Bipolar disorder [Unknown]
  - Intentional drug misuse [Unknown]
